FAERS Safety Report 11601808 (Version 2)
Quarter: 2015Q4

REPORT INFORMATION
  Report Type: Spontaneous
  Country: US (occurrence: US)
  Receive Date: 20151006
  Receipt Date: 20151008
  Transmission Date: 20160304
  Serious: No
  Sender: FDA-Public Use
  Company Number: US-AMGEN-USASP2015049989

PATIENT
  Age: 89 Year
  Sex: Female

DRUGS (2)
  1. PROLIA [Suspect]
     Active Substance: DENOSUMAB
     Indication: PRODUCT USED FOR UNKNOWN INDICATION
     Dosage: UNK
     Route: 065
     Dates: start: 2013
  2. SINGULAIR [Concomitant]
     Active Substance: MONTELUKAST SODIUM
     Dosage: UNK UNK, QHS

REACTIONS (5)
  - Cheilitis [Unknown]
  - Gingival disorder [Unknown]
  - Rash pruritic [Recovered/Resolved]
  - Eye pruritus [Unknown]
  - Gingival pain [Unknown]

NARRATIVE: CASE EVENT DATE: 20150420
